FAERS Safety Report 5697821-4 (Version None)
Quarter: 2008Q2

REPORT INFORMATION
  Report Type: 
  Country: None (occurrence: None)
  Receive Date: 20080408
  Receipt Date: 20080402
  Transmission Date: 20081010
  Serious: Yes (Hospitalization, Other)
  Sender: FDA-Public Use
  Company Number: US-BRISTOL-MYERS SQUIBB COMPANY-14074652

PATIENT
  Age: 67 Year
  Sex: Male

DRUGS (22)
  1. BLINDED: APIXABAN [Suspect]
     Indication: THROMBOSIS PROPHYLAXIS
     Dosage: INTERRUPTED ON 12FEB08
     Route: 048
     Dates: start: 20070510
  2. WARFARIN SODIUM [Suspect]
     Indication: THROMBOSIS PROPHYLAXIS
     Route: 048
     Dates: start: 20070510
  3. PLACEBO [Suspect]
     Indication: THROMBOSIS PROPHYLAXIS
     Route: 048
     Dates: start: 20070510
  4. AVAPRO [Concomitant]
     Dates: start: 20071026
  5. GLUCOPHAGE [Concomitant]
     Dates: start: 20070905
  6. ALLOPURINOL [Concomitant]
  7. ASPIRIN [Concomitant]
  8. CHONDROITIN SULFATE [Concomitant]
  9. CO-Q-10 [Concomitant]
  10. DIGITEK [Concomitant]
  11. FUROSEMIDE [Concomitant]
  12. GLUCOSAMINE [Concomitant]
  13. HYALURONIC ACID [Concomitant]
  14. KLOR-CON [Concomitant]
  15. LUTEIN [Concomitant]
  16. METOPROLOL TARTRATE [Concomitant]
  17. NIACIN [Concomitant]
  18. OMEGA 3 FISH OIL [Concomitant]
  19. POLICOSANOL [Concomitant]
  20. VITAMIN [Concomitant]
  21. VITAMIN B COMPLEX CAP [Concomitant]
  22. VITAMIN E [Concomitant]

REACTIONS (3)
  - ACUTE MYELOID LEUKAEMIA [None]
  - HYPOKALAEMIA [None]
  - PANCYTOPENIA [None]
